FAERS Safety Report 8616584-3 (Version None)
Quarter: 2012Q3

REPORT INFORMATION
  Report Type: 
  Country: None (occurrence: None)
  Receive Date: 20120823
  Receipt Date: 20120820
  Transmission Date: 20120928
  Serious: Yes (Hospitalization)
  Sender: FDA-Public Use
  Company Number: GB-TEVA-342331USA

PATIENT
  Sex: Male

DRUGS (3)
  1. DEXAMETHASONE [Suspect]
     Dosage: 2.8571 MILLIGRAM DAILY;
     Route: 048
     Dates: start: 20120330, end: 20120528
  2. TREANDA [Suspect]
     Dosage: 8 MILLIGRAM DAILY;
     Route: 042
     Dates: start: 20120330, end: 20120525
  3. THALIDOMIDE [Suspect]
     Dosage: 100 MILLIGRAM DAILY;
     Route: 048
     Dates: start: 20120330, end: 20120528

REACTIONS (1)
  - RESPIRATORY TRACT INFECTION [None]
